FAERS Safety Report 21753017 (Version 2)
Quarter: 2022Q4

REPORT INFORMATION
  Report Type: Report from Study
  Country: MX (occurrence: MX)
  Receive Date: 20221220
  Receipt Date: 20221226
  Transmission Date: 20230113
  Serious: Yes (Other)
  Sender: FDA-Public Use
  Company Number: MX-GLAXOSMITHKLINE-MX2022188787

PATIENT

DRUGS (30)
  1. DOSTARLIMAB [Suspect]
     Active Substance: DOSTARLIMAB
     Indication: Non-small cell lung cancer
     Dosage: DOSE AT CYCLE 1 - DAY 1
     Route: 042
     Dates: start: 20220126, end: 20220126
  2. DOSTARLIMAB [Suspect]
     Active Substance: DOSTARLIMAB
     Dosage: DOSE AT DAY 1
     Route: 042
     Dates: start: 20220215, end: 20220215
  3. DOSTARLIMAB [Suspect]
     Active Substance: DOSTARLIMAB
     Dosage: DOSE AT DAY 1
     Route: 042
     Dates: start: 20220308, end: 20220308
  4. DOSTARLIMAB [Suspect]
     Active Substance: DOSTARLIMAB
     Dosage: DOSE AT DAY 1
     Route: 042
     Dates: start: 20220329, end: 20220329
  5. DOSTARLIMAB [Suspect]
     Active Substance: DOSTARLIMAB
     Dosage: DOSE AT DAY 1
     Route: 042
     Dates: start: 20220419, end: 20220419
  6. DOSTARLIMAB [Suspect]
     Active Substance: DOSTARLIMAB
     Dosage: DOSE AT DAY 1
     Route: 042
     Dates: start: 20220510, end: 20220510
  7. DOSTARLIMAB [Suspect]
     Active Substance: DOSTARLIMAB
     Dosage: DOSE AT DAY 1
     Route: 042
     Dates: start: 20220531, end: 20220531
  8. DOSTARLIMAB [Suspect]
     Active Substance: DOSTARLIMAB
     Dosage: DOSE AT DAY 1
     Route: 042
     Dates: start: 20220621, end: 20220621
  9. DOSTARLIMAB [Suspect]
     Active Substance: DOSTARLIMAB
     Dosage: DOSE AT DAY 1
     Route: 042
     Dates: start: 20220712, end: 20220712
  10. DOSTARLIMAB [Suspect]
     Active Substance: DOSTARLIMAB
     Dosage: DOSE AT DAY 1
     Route: 042
     Dates: start: 20220803, end: 20220803
  11. DOSTARLIMAB [Suspect]
     Active Substance: DOSTARLIMAB
     Dosage: DOSE AT DAY 1
     Route: 042
     Dates: start: 20220823, end: 20220823
  12. DOSTARLIMAB [Suspect]
     Active Substance: DOSTARLIMAB
     Dosage: DOSE AT DAY 1
     Route: 042
     Dates: start: 20220913, end: 20220913
  13. DOSTARLIMAB [Suspect]
     Active Substance: DOSTARLIMAB
     Dosage: DOSE AT DAY 1
     Route: 042
     Dates: start: 20221004, end: 20221004
  14. DOSTARLIMAB [Suspect]
     Active Substance: DOSTARLIMAB
     Dosage: DOSE AT DAY 1
     Route: 042
     Dates: start: 20221025, end: 20221025
  15. DOSTARLIMAB [Suspect]
     Active Substance: DOSTARLIMAB
     Dosage: DOSE AT DAY 1
     Route: 042
     Dates: start: 20221115, end: 20221115
  16. DOCETAXEL [Suspect]
     Active Substance: DOCETAXEL
     Indication: Non-small cell lung cancer
     Dosage: DOSE AT CYCLE 1 - DAY 1
     Route: 042
     Dates: start: 20220126, end: 20220126
  17. DOCETAXEL [Suspect]
     Active Substance: DOCETAXEL
     Dosage: DOSE AT DAY 1
     Route: 042
     Dates: start: 20220215, end: 20220215
  18. DOCETAXEL [Suspect]
     Active Substance: DOCETAXEL
     Dosage: DOSE AT DAY 1
     Route: 042
     Dates: start: 20220308, end: 20220308
  19. DOCETAXEL [Suspect]
     Active Substance: DOCETAXEL
     Dosage: DOSE AT DAY 1
     Route: 042
     Dates: start: 20220329, end: 20220329
  20. DOCETAXEL [Suspect]
     Active Substance: DOCETAXEL
     Dosage: DOSE AT DAY 1
     Route: 042
     Dates: start: 20220419, end: 20220419
  21. DOCETAXEL [Suspect]
     Active Substance: DOCETAXEL
     Dosage: DOSE AT DAY 1
     Route: 042
     Dates: start: 20220510, end: 20220510
  22. DOCETAXEL [Suspect]
     Active Substance: DOCETAXEL
     Dosage: DOSE AT DAY 1
     Route: 042
     Dates: start: 20220531, end: 20220531
  23. DOCETAXEL [Suspect]
     Active Substance: DOCETAXEL
     Dosage: DOSE AT DAY 1
     Route: 042
     Dates: start: 20220621, end: 20220621
  24. DOCETAXEL [Suspect]
     Active Substance: DOCETAXEL
     Dosage: DOSE AT DAY 1
     Route: 042
     Dates: start: 20220712, end: 20220712
  25. DOCETAXEL [Suspect]
     Active Substance: DOCETAXEL
     Dosage: DOSE AT DAY 1
     Route: 042
     Dates: start: 20220803, end: 20220803
  26. DOCETAXEL [Suspect]
     Active Substance: DOCETAXEL
     Dosage: DOSE AT DAY 1
     Route: 042
     Dates: start: 20220823, end: 20220823
  27. DOCETAXEL [Suspect]
     Active Substance: DOCETAXEL
     Dosage: DOSE AT DAY 1
     Route: 042
     Dates: start: 20220913, end: 20220913
  28. DOCETAXEL [Suspect]
     Active Substance: DOCETAXEL
     Dosage: DOSE AT DAY 1
     Route: 042
     Dates: start: 20221004, end: 20221004
  29. DOCETAXEL [Suspect]
     Active Substance: DOCETAXEL
     Dosage: DOSE AT DAY 1
     Route: 042
     Dates: start: 20221025, end: 20221025
  30. DOCETAXEL [Suspect]
     Active Substance: DOCETAXEL
     Dosage: DOSE AT DAY 1
     Route: 042
     Dates: start: 20221115, end: 20221115

REACTIONS (1)
  - Muscular weakness [Recovering/Resolving]

NARRATIVE: CASE EVENT DATE: 20221214
